FAERS Safety Report 9714434 (Version 1)
Quarter: 2013Q4

REPORT INFORMATION
  Report Type: Spontaneous
  Country: US (occurrence: US)
  Receive Date: 20131126
  Receipt Date: 20131126
  Transmission Date: 20140711
  Serious: No
  Sender: FDA-Public Use
  Company Number: US-BIOGENIDEC-2013BI077309

PATIENT
  Age: 23 Year
  Sex: Female

DRUGS (2)
  1. TECFIDERA [Suspect]
     Indication: MULTIPLE SCLEROSIS
     Dates: start: 20130723
  2. METHYLPREDNISOLONE [Concomitant]

REACTIONS (6)
  - Hypophagia [Unknown]
  - Cystitis [Not Recovered/Not Resolved]
  - Dehydration [Recovered/Resolved]
  - Mental disorder [Unknown]
  - Nausea [Recovered/Resolved]
  - Flushing [Not Recovered/Not Resolved]
